FAERS Safety Report 20007481 (Version 1)
Quarter: 2021Q4

REPORT INFORMATION
  Report Type: Spontaneous
  Country: CN (occurrence: CN)
  Receive Date: 20211028
  Receipt Date: 20211028
  Transmission Date: 20220304
  Serious: Yes (Other)
  Sender: FDA-Public Use
  Company Number: CN-PFIZER INC-202101378755

PATIENT
  Sex: Female

DRUGS (1)
  1. IBRANCE [Suspect]
     Active Substance: PALBOCICLIB
     Dosage: 200 MG, 1X/DAY
     Route: 048
     Dates: start: 20210910

REACTIONS (2)
  - Overdose [Unknown]
  - Renal failure [Unknown]

NARRATIVE: CASE EVENT DATE: 20210101
